FAERS Safety Report 7482712-9 (Version None)
Quarter: 2011Q2

REPORT INFORMATION
  Report Type: 
  Country: None (occurrence: None)
  Receive Date: 20110516
  Receipt Date: 20091221
  Transmission Date: 20111010
  Serious: Yes (Other)
  Sender: FDA-Public Use
  Company Number: PHHY2009DE67285

PATIENT

DRUGS (1)
  1. EXTAVIA [Suspect]
     Dosage: UNK
     Route: 058
     Dates: start: 20090602

REACTIONS (8)
  - INAPPROPRIATE SCHEDULE OF DRUG ADMINISTRATION [None]
  - FEELING OF BODY TEMPERATURE CHANGE [None]
  - VERTIGO [None]
  - CHILLS [None]
  - NASOPHARYNGITIS [None]
  - ABDOMINAL DISCOMFORT [None]
  - MALAISE [None]
  - INFLUENZA [None]
